FAERS Safety Report 18919083 (Version 5)
Quarter: 2021Q3

REPORT INFORMATION
  Report Type: Report from Study
  Country: CO (occurrence: CO)
  Receive Date: 20210220
  Receipt Date: 20210801
  Transmission Date: 20211014
  Serious: Yes (Death, Life-Threatening, Other)
  Sender: FDA-Public Use
  Company Number: NVSC2020CO064670

PATIENT
  Age: 66 Year
  Sex: Female

DRUGS (2)
  1. KISQALI [Suspect]
     Active Substance: RIBOCICLIB
     Indication: BREAST CANCER METASTATIC
     Dosage: UNK
     Route: 048
  2. FEMARA [Suspect]
     Active Substance: LETROZOLE
     Indication: BREAST CANCER
     Dosage: 2.5 MG, QD
     Route: 048

REACTIONS (32)
  - Loss of consciousness [Unknown]
  - Crying [Unknown]
  - Pain in extremity [Unknown]
  - Oesophageal obstruction [Unknown]
  - Eating disorder [Unknown]
  - Fall [Unknown]
  - Malaise [Unknown]
  - Metastases to spine [Unknown]
  - Gastrooesophageal reflux disease [Unknown]
  - Dizziness [Unknown]
  - Terminal state [Unknown]
  - Movement disorder [Unknown]
  - Ill-defined disorder [Unknown]
  - Bone pain [Unknown]
  - Back pain [Unknown]
  - Gastric disorder [Unknown]
  - Product dose omission issue [Unknown]
  - Arthralgia [Unknown]
  - Gait disturbance [Unknown]
  - Thermal burn [Unknown]
  - Weight decreased [Unknown]
  - Nausea [Unknown]
  - Limb discomfort [Unknown]
  - Pain [Unknown]
  - Eye irritation [Unknown]
  - Death [Fatal]
  - Fluid retention [Unknown]
  - Swelling [Unknown]
  - Papule [Unknown]
  - Bacterial infection [Unknown]
  - Tension [Unknown]
  - Abdominal pain upper [Unknown]

NARRATIVE: CASE EVENT DATE: 20210721
